FAERS Safety Report 4555752-7 (Version None)
Quarter: 2005Q1

REPORT INFORMATION
  Report Type: 
  Country: None (occurrence: None)
  Receive Date: 20050119
  Receipt Date: 20050113
  Transmission Date: 20050727
  Serious: Yes (Other)
  Sender: FDA-Public Use
  Company Number: 200510082EU

PATIENT
  Age: 61 Year
  Sex: Male

DRUGS (3)
  1. DAONIL [Suspect]
     Indication: DIABETES MELLITUS
     Route: 048
     Dates: start: 20040311
  2. ORFIDAL [Concomitant]
     Indication: ANXIETY
     Route: 048
     Dates: start: 20030724
  3. ADIRO [Concomitant]
     Indication: DIABETES MELLITUS
     Route: 048
     Dates: start: 20031205

REACTIONS (1)
  - GYNAECOMASTIA [None]
